FAERS Safety Report 9593465 (Version 2)
Quarter: 2013Q4

REPORT INFORMATION
  Report Type: Spontaneous
  Country: US (occurrence: None)
  Receive Date: 20131002
  Receipt Date: 20131104
  Transmission Date: 20140711
  Serious: Yes (Other)
  Sender: FDA-Public Use
  Company Number: ACO_38591_2013

PATIENT
  Sex: Female

DRUGS (9)
  1. AMPYRA [Suspect]
     Indication: GAIT DISTURBANCE
     Route: 048
     Dates: start: 201204, end: 20130916
  2. CRESTOR (ROSUVASTATIN CALCIUM) [Concomitant]
  3. ZETIA (EZETIMIBE) [Concomitant]
  4. TRICOR (FENOFIBRATE) [Concomitant]
  5. NEXIUM (ESOMEPRAZOLE MAGNESIUM) [Concomitant]
  6. CALCIUM (CALCIUM) [Concomitant]
  7. MIRALAX (MACROGOL) [Concomitant]
  8. POLYETHYLENE GLYCOL (MACROGOL) [Concomitant]
  9. VITAMIN D (ERGOCALCIFEROL) [Concomitant]

REACTIONS (5)
  - Convulsion [None]
  - Micturition urgency [None]
  - Dizziness [None]
  - Demyelination [None]
  - Myelomalacia [None]
